FAERS Safety Report 21155377 (Version 1)
Quarter: 2022Q3

REPORT INFORMATION
  Report Type: Spontaneous
  Country: IT (occurrence: IT)
  Receive Date: 20220801
  Receipt Date: 20220801
  Transmission Date: 20221026
  Serious: Yes (Hospitalization)
  Sender: FDA-Public Use
  Company Number: None

PATIENT
  Age: 79 Year
  Sex: Female
  Weight: 62 kg

DRUGS (5)
  1. METFORMIN [Suspect]
     Active Substance: METFORMIN HYDROCHLORIDE
     Indication: Diabetes mellitus
     Dosage: 500 MILLIGRAM DAILY; 500 MG / DAY 1 TABLET WITH MEALS
  2. SOTALOL [Concomitant]
     Active Substance: SOTALOL
     Indication: Product used for unknown indication
     Dosage: ONE 80 MG TABLET THREE TIMES A DAY, UNIT DOSE 240 MG, FREQUENCY 24 HRS
  3. ZOFENOPRIL [Concomitant]
     Active Substance: ZOFENOPRIL
     Indication: Product used for unknown indication
     Dosage: 30 MILLIGRAM DAILY; ONE 30 MG TABLET PER DAY
  4. LUVION [Concomitant]
     Indication: Product used for unknown indication
     Dosage: 50 MILLIGRAM DAILY; ONE 50 MG TABLET ONCE A DAY
  5. AMLODIPINE BESYLATE [Concomitant]
     Active Substance: AMLODIPINE BESYLATE
     Indication: Product used for unknown indication
     Dosage: 10 MILLIGRAM DAILY; ONE 10 MG TABLET PER DAY

REACTIONS (3)
  - Hyperlactacidaemia [Recovering/Resolving]
  - Acidosis [Recovering/Resolving]
  - Hyperkalaemia [Recovering/Resolving]

NARRATIVE: CASE EVENT DATE: 20220627
